FAERS Safety Report 4541558-1 (Version None)
Quarter: 2004Q4

REPORT INFORMATION
  Report Type: 
  Country: None (occurrence: None)
  Receive Date: 20041227
  Receipt Date: 20041221
  Transmission Date: 20050328
  Serious: Yes (Life-Threatening, Hospitalization)
  Sender: FDA-Public Use
  Company Number: 2004-11-1597

PATIENT
  Age: 51 Year
  Sex: Female
  Weight: 68 kg

DRUGS (9)
  1. TEMODAL [Suspect]
     Indication: GLIOBLASTOMA
     Dosage: 140 MG ORAL
     Route: 048
     Dates: start: 20040930, end: 20041029
  2. TEMODAL [Suspect]
     Indication: GLIOBLASTOMA
     Dosage: 140 MG ORAL
     Route: 048
     Dates: start: 20040930, end: 20041201
  3. TEMODAL [Suspect]
     Indication: GLIOBLASTOMA
     Dosage: 140 MG ORAL
     Route: 048
     Dates: start: 20041115, end: 20041201
  4. RADIATION THERAPY [Suspect]
     Indication: GLIOBLASTOMA
     Dosage: 2 GY 5X/WK X-RAY THERAPY
     Dates: start: 20040930, end: 20041029
  5. RADIATION THERAPY [Suspect]
     Indication: GLIOBLASTOMA
     Dosage: 2 GY 5X/WK X-RAY THERAPY
     Dates: start: 20040930, end: 20041201
  6. RADIATION THERAPY [Suspect]
     Indication: GLIOBLASTOMA
     Dosage: 2 GY 5X/WK X-RAY THERAPY
     Dates: start: 20041115, end: 20041201
  7. DEXAMETHASONE [Concomitant]
  8. DEXAMETHASONE [Concomitant]
  9. . [Concomitant]

REACTIONS (2)
  - CANDIDIASIS [None]
  - PNEUMONIA [None]
